FAERS Safety Report 21459687 (Version 1)
Quarter: 2022Q4

REPORT INFORMATION
  Report Type: Spontaneous
  Country: US (occurrence: US)
  Receive Date: 20221014
  Receipt Date: 20221014
  Transmission Date: 20230113
  Serious: Yes (Other)
  Sender: FDA-Public Use
  Company Number: US-JNJFOC-20221005840

PATIENT
  Sex: Female

DRUGS (1)
  1. ELMIRON [Suspect]
     Active Substance: PENTOSAN POLYSULFATE SODIUM
     Indication: Cystitis interstitial
     Dosage: ELMIRON USED FOR 8 TO 10 YEARS (200 MG DAILY) VIA INSTILLATION
     Route: 048

REACTIONS (3)
  - Maculopathy [Unknown]
  - Off label use [Unknown]
  - Off label use [Unknown]
